FAERS Safety Report 13050042 (Version 3)
Quarter: 2017Q1

REPORT INFORMATION
  Report Type: Report from Study
  Country: BR (occurrence: BR)
  Receive Date: 20161221
  Receipt Date: 20170130
  Transmission Date: 20170428
  Serious: Yes (Hospitalization, Other)
  Sender: FDA-Public Use
  Company Number: PHHY2016BR145320

PATIENT
  Age: 39 Year
  Sex: Male
  Weight: 77 kg

DRUGS (4)
  1. CLINDAMICINA [Concomitant]
     Active Substance: CLINDAMYCIN HYDROCHLORIDE
     Indication: PRODUCT USED FOR UNKNOWN INDICATION
     Dosage: 100 ML, UNK
     Route: 042
     Dates: start: 20161124
  2. OXACILINA [Concomitant]
     Indication: PRODUCT USED FOR UNKNOWN INDICATION
     Dosage: (100ML)  4 DF, QD
     Route: 042
     Dates: start: 20161124
  3. EXJADE [Suspect]
     Active Substance: DEFERASIROX
     Indication: MYELODYSPLASTIC SYNDROME
     Dosage: 3 DF, QD (1500 MG)
     Route: 048
     Dates: start: 201605, end: 20161222
  4. EXJADE [Suspect]
     Active Substance: DEFERASIROX
     Dosage: 3 DF, QD
     Route: 048
     Dates: start: 20161227

REACTIONS (9)
  - Gastrointestinal haemorrhage [Unknown]
  - Vascular rupture [Unknown]
  - Weight increased [Unknown]
  - Cardiac infection [Unknown]
  - Endocarditis [Unknown]
  - Cytogenetic abnormality [Unknown]
  - Bacterial infection [Recovering/Resolving]
  - Thrombocytopenia [Unknown]
  - Nausea [Recovered/Resolved]

NARRATIVE: CASE EVENT DATE: 201605
